FAERS Safety Report 8432931-X (Version None)
Quarter: 2012Q2

REPORT INFORMATION
  Report Type: 
  Country: None (occurrence: None)
  Receive Date: 20120613
  Receipt Date: 20120606
  Transmission Date: 20120825
  Serious: Yes (Other)
  Sender: FDA-Public Use
  Company Number: US-JNJFOC-20100808212

PATIENT
  Sex: Male

DRUGS (2)
  1. CIPROFLOXACIN HCL [Suspect]
     Indication: UPPER RESPIRATORY TRACT INFECTION
     Route: 048
  2. LEVAQUIN [Suspect]
     Indication: INFECTION
     Route: 048
     Dates: start: 20070801, end: 20071231

REACTIONS (2)
  - ROTATOR CUFF SYNDROME [None]
  - ATRIAL FLUTTER [None]
